FAERS Safety Report 9204334 (Version 1)
Quarter: 2013Q2

REPORT INFORMATION
  Report Type: Spontaneous
  Country: CH (occurrence: CH)
  Receive Date: 20130402
  Receipt Date: 20130402
  Transmission Date: 20140414
  Serious: Yes (Other)
  Sender: FDA-Public Use
  Company Number: CH-ROCHE-1208934

PATIENT
  Age: 88 Year
  Sex: Male

DRUGS (6)
  1. LUCENTIS [Suspect]
     Indication: AGE-RELATED MACULAR DEGENERATION
     Route: 050
     Dates: start: 20100511
  2. LUCENTIS [Suspect]
     Route: 050
     Dates: start: 20121029, end: 20121029
  3. ASPIRIN CARDIO [Concomitant]
  4. TENORMIN [Concomitant]
  5. CALCIMAGON [Concomitant]
  6. ERGOCALCIFEROL [Concomitant]
     Dosage: VITAMIN D
     Route: 065

REACTIONS (1)
  - Transient ischaemic attack [Unknown]
